FAERS Safety Report 7769871-5 (Version None)
Quarter: 2011Q3

REPORT INFORMATION
  Report Type: 
  Country: None (occurrence: None)
  Receive Date: 20110922
  Receipt Date: 20100729
  Transmission Date: 20111222
  Serious: Yes (Other)
  Sender: FDA-Public Use
  Company Number: US-ASTRAZENECA-2010SE35585

PATIENT
  Sex: Female
  Weight: 42.2 kg

DRUGS (9)
  1. METHADONE HCL [Concomitant]
  2. BLOOD PRESSURE MEDICATION [Concomitant]
  3. ATIVAN [Concomitant]
  4. SEROQUEL [Suspect]
     Indication: SLEEP DISORDER
     Dosage: 1500-1800 MG
     Route: 048
     Dates: start: 19970101
  5. SEROQUEL [Suspect]
     Indication: COGNITIVE DISORDER
     Dosage: 1500-1800 MG
     Route: 048
     Dates: start: 19970101
  6. VALIUM [Concomitant]
  7. SEROQUEL [Suspect]
     Route: 048
     Dates: start: 20100101
  8. SEROQUEL [Suspect]
     Route: 048
     Dates: start: 20100101
  9. MUSCLE RELAXER [Concomitant]

REACTIONS (9)
  - FEELING ABNORMAL [None]
  - PARAESTHESIA [None]
  - MENTAL DISORDER [None]
  - DRUG DOSE OMISSION [None]
  - DYSPHONIA [None]
  - APHAGIA [None]
  - AMNESIA [None]
  - SUICIDE ATTEMPT [None]
  - COGNITIVE DISORDER [None]
